FAERS Safety Report 12809840 (Version 1)
Quarter: 2016Q4

REPORT INFORMATION
  Report Type: Spontaneous
  Country: US (occurrence: US)
  Receive Date: 20161005
  Receipt Date: 20161005
  Transmission Date: 20170207
  Serious: No
  Sender: FDA-Public Use
  Company Number: US-ADAREPHARM-2016-US-000035

PATIENT
  Sex: Male

DRUGS (1)
  1. KCL [Suspect]
     Active Substance: POTASSIUM CHLORIDE
     Route: 048

REACTIONS (2)
  - Wrong technique in product usage process [Unknown]
  - Medication residue present [Unknown]
